FAERS Safety Report 21705482 (Version 2)
Quarter: 2023Q1

REPORT INFORMATION
  Report Type: Spontaneous
  Country: GB (occurrence: GB)
  Receive Date: 20221209
  Receipt Date: 20230104
  Transmission Date: 20230417
  Serious: Yes (Life-Threatening, Hospitalization, Disabling, Other)
  Sender: FDA-Public Use
  Company Number: None

PATIENT
  Age: 43 Year
  Sex: Male
  Weight: 83 kg

DRUGS (2)
  1. VENLAFAXINE [Suspect]
     Active Substance: VENLAFAXINE HYDROCHLORIDE
     Indication: Depressed mood
     Dosage: UNKNOWN
     Route: 048
     Dates: start: 20220810, end: 20221008
  2. SERTRALINE [Concomitant]
     Active Substance: SERTRALINE HYDROCHLORIDE
     Indication: Product used for unknown indication
     Route: 065

REACTIONS (15)
  - Medication error [Unknown]
  - Vomiting [Recovering/Resolving]
  - Panic disorder [Recovering/Resolving]
  - Sleep apnoea syndrome [Recovered/Resolved with Sequelae]
  - Underweight [Not Recovered/Not Resolved]
  - Mania [Not Recovered/Not Resolved]
  - Nightmare [Not Recovered/Not Resolved]
  - Completed suicide [Unknown]
  - Suicidal ideation [Not Recovered/Not Resolved]
  - Epistaxis [Unknown]
  - Anxiety [Unknown]
  - Heart rate increased [Unknown]
  - Insomnia [Unknown]
  - Tremor [Unknown]
  - Hypophagia [Unknown]

NARRATIVE: CASE EVENT DATE: 20221004
